FAERS Safety Report 5872025-0 (Version None)
Quarter: 2008Q3

REPORT INFORMATION
  Report Type: 
  Country: None (occurrence: None)
  Receive Date: 20080902
  Receipt Date: 20080821
  Transmission Date: 20090109
  Serious: Yes (Other)
  Sender: FDA-Public Use
  Company Number: 2008S1008416

PATIENT
  Age: 50 Year
  Sex: Male

DRUGS (5)
  1. PHOSPHOSODA FLAVOR NOT SPECIFIED (SODIUM PHOSPHATE DIBASIC/SODIUM PHOS [Suspect]
     Indication: COLONOSCOPY
     Dosage: PO, 169; PO
     Route: 048
     Dates: start: 20060701, end: 20060701
  2. PHOSPHOSODA FLAVOR NOT SPECIFIED (SODIUM PHOSPHATE DIBASIC/SODIUM PHOS [Suspect]
     Indication: ENDOSCOPY UPPER GASTROINTESTINAL TRACT
     Dosage: PO, 169; PO
     Route: 048
     Dates: start: 20060701, end: 20060701
  3. OMEPRAZOLE [Concomitant]
  4. BETA BLOCKING AGENTS (BETA BLOCKING AGENTS) [Concomitant]
  5. ANGIOTENSIN II (ANGIOTENSIN II) [Concomitant]

REACTIONS (6)
  - BLOOD CREATININE INCREASED [None]
  - KIDNEY FIBROSIS [None]
  - NEPHRITIS INTERSTITIAL [None]
  - NEPHROCALCINOSIS [None]
  - NEPHROPATHY [None]
  - RENAL TUBULAR ATROPHY [None]
